FAERS Safety Report 10674339 (Version 1)
Quarter: 2014Q4

REPORT INFORMATION
  Report Type: Spontaneous
  Country: US (occurrence: US)
  Receive Date: 20141224
  Receipt Date: 20141224
  Transmission Date: 20150529
  Serious: No
  Sender: FDA-Public Use
  Company Number: US-PFIZER INC-2014349252

PATIENT
  Age: 57 Year
  Sex: Female
  Weight: 43 kg

DRUGS (7)
  1. PATANASE [Concomitant]
     Active Substance: OLOPATADINE HYDROCHLORIDE
     Dosage: 665 ?G (TWO SPRAY), IN EACH NOSTRIL 2X/DAY
  2. RED YEAST RICE [Concomitant]
     Active Substance: DIETARY SUPPLEMENT
     Dosage: 1800 MG, UNK
  3. CALCIUM [Concomitant]
     Active Substance: CALCIUM
     Indication: OSTEOPOROSIS
  4. NASONEX [Concomitant]
     Active Substance: MOMETASONE FUROATE
     Dosage: 50 ?G (2 SPRAY), 1X/DAY IN EACH NOSTRIL
     Route: 045
  5. RELPAX [Suspect]
     Active Substance: ELETRIPTAN HYDROBROMIDE
     Indication: MIGRAINE
     Dosage: 40 MG, AS NEEDED
     Dates: start: 2014
  6. QVAR [Concomitant]
     Active Substance: BECLOMETHASONE DIPROPIONATE
     Dosage: 80 ?G, 2X/DAY
  7. RED YEAST RICE [Concomitant]
     Active Substance: DIETARY SUPPLEMENT
     Indication: BLOOD CHOLESTEROL
     Dosage: 2400 MG, UNK

REACTIONS (6)
  - Flushing [Unknown]
  - Abdominal discomfort [Unknown]
  - Paraesthesia [Unknown]
  - Memory impairment [Unknown]
  - Dizziness [Unknown]
  - Feeling hot [Unknown]
